FAERS Safety Report 25980476 (Version 2)
Quarter: 2025Q4

REPORT INFORMATION
  Report Type: Report from Study
  Country: KR (occurrence: KR)
  Receive Date: 20251030
  Receipt Date: 20251126
  Transmission Date: 20260118
  Serious: Yes (Death)
  Sender: GUERBET
  Company Number: KR-GUERBET / KOREA-KR-20250062

PATIENT
  Age: 29 Year
  Sex: Male

DRUGS (6)
  1. LIPIODOL [Suspect]
     Active Substance: ETHIODIZED OIL
     Indication: Lymphangiogram
     Dosage: APPROXIMATELY 0.5 ML/MIN
     Route: 027
     Dates: start: 20190524, end: 20190524
  2. LIPIODOL [Suspect]
     Active Substance: ETHIODIZED OIL
     Indication: Therapeutic embolisation
     Dosage: NBCA (N-BUTYL 2-CYANOACRYLATE) WAS MIXED WITH LIPIODOL (ETHIODIZED OIL) AT A RATIO OF 1:2
     Route: 027
     Dates: start: 20190524, end: 20190524
  3. LIPIODOL [Suspect]
     Active Substance: ETHIODIZED OIL
     Route: 027
     Dates: start: 20190524, end: 20190524
  4. ENBUCRILATE [Suspect]
     Active Substance: ENBUCRILATE
     Indication: Therapeutic embolisation
     Dosage: NBCA (N-BUTYL 2-CYANOACRYLATE) WAS MIXED WITH LIPIODOL (ETHIODIZED OIL) AT A RATIO OF 1:2
     Route: 027
     Dates: start: 20190524, end: 20190524
  5. SIROLIMUS [Concomitant]
     Active Substance: SIROLIMUS
     Indication: Gorham^s disease
  6. Pamiray 370 [Concomitant]
     Indication: Lymphangiogram
     Route: 027

REACTIONS (2)
  - Product use in unapproved indication [Fatal]
  - Ascites [Fatal]

NARRATIVE: CASE EVENT DATE: 20190524
